FAERS Safety Report 16681512 (Version 2)
Quarter: 2019Q3

REPORT INFORMATION
  Report Type: Spontaneous
  Country: NL (occurrence: NL)
  Receive Date: 20190808
  Receipt Date: 20190813
  Transmission Date: 20191004
  Serious: Yes (Other)
  Sender: FDA-Public Use
  Company Number: NL-TEVA-2019-NL-1089721

PATIENT
  Age: 22 Year
  Sex: Female
  Weight: 56 kg

DRUGS (2)
  1. DOXYCYCLINE TABLET, 100 MG (MILLIGRAM) [Suspect]
     Active Substance: DOXYCYCLINE
     Indication: CHLAMYDIAL INFECTION
     Dosage: 2X PER DAY; 100 MILLIGRAM, 12 HOURS
     Dates: start: 20190613
  2. MICROGYNON 50 [Concomitant]

REACTIONS (4)
  - Anxiety [Recovered/Resolved]
  - Depressed mood [Recovered/Resolved]
  - Suicidal ideation [Not Recovered/Not Resolved]
  - Urticaria [Recovering/Resolving]

NARRATIVE: CASE EVENT DATE: 20190614
